FAERS Safety Report 7046251-1 (Version None)
Quarter: 2010Q4

REPORT INFORMATION
  Report Type: 
  Country: None (occurrence: None)
  Receive Date: 20101014
  Receipt Date: 20101008
  Transmission Date: 20110411
  Serious: Yes (Hospitalization)
  Sender: FDA-Public Use
  Company Number: A0885653A

PATIENT
  Age: 71 Year
  Sex: Female

DRUGS (6)
  1. ADVAIR DISKUS 100/50 [Suspect]
     Indication: CHRONIC OBSTRUCTIVE PULMONARY DISEASE
     Dosage: 2PUFF TWICE PER DAY
     Route: 055
  2. ZOLOFT [Concomitant]
  3. ATIVAN [Concomitant]
  4. PROAIR HFA [Concomitant]
  5. SINGULAIR [Concomitant]
  6. SPIRIVA [Concomitant]

REACTIONS (2)
  - BRONCHITIS [None]
  - OVERDOSE [None]
